FAERS Safety Report 10305634 (Version 1)
Quarter: 2014Q3

REPORT INFORMATION
  Report Type: Spontaneous
  Country: US (occurrence: None)
  Receive Date: 20140714
  Receipt Date: 20140714
  Transmission Date: 20150326
  Serious: Yes (Hospitalization)
  Sender: FDA-Public Use
  Company Number: None

PATIENT
  Age: 72 Year
  Sex: Male
  Weight: 112 kg

DRUGS (15)
  1. FEBUXOSTAT. [Concomitant]
     Active Substance: FEBUXOSTAT
  2. FUROSEMIDE (LASIX) [Concomitant]
  3. LANTUS [Concomitant]
     Active Substance: INSULIN GLARGINE
  4. FENTANYL (DURAGESIC) [Concomitant]
  5. CARVEDILOL (COREG) [Concomitant]
  6. PROLIA [Suspect]
     Active Substance: DENOSUMAB
     Indication: PROSTATE CANCER METASTATIC
     Dosage: ONCE YEARLY
  7. CALCIUM CARBONATE (TUMS) [Concomitant]
  8. HYDRALAZINE (APRESOLINE) [Concomitant]
  9. SODIUM BICARBONATE. [Concomitant]
     Active Substance: SODIUM BICARBONATE
  10. PROLIA [Suspect]
     Active Substance: DENOSUMAB
     Indication: METASTASES TO BONE
     Dosage: ONCE YEARLY
  11. PREDNISONE (DELTASONE) [Concomitant]
  12. DIAZEPAM (VALIUM) [Concomitant]
  13. POLYETHYLENE GLYCOL (GLYCOLAX) [Concomitant]
  14. ERGOCALCIFEROL (ERGOCALCIFEROL) [Concomitant]
     Active Substance: ERGOCALCIFEROL
  15. CASODEX [Concomitant]
     Active Substance: BICALUTAMIDE

REACTIONS (6)
  - Cardiac failure [None]
  - Musculoskeletal stiffness [None]
  - Joint stiffness [None]
  - Hypocalcaemia [None]
  - Condition aggravated [None]
  - Electrocardiogram abnormal [None]

NARRATIVE: CASE EVENT DATE: 20140702
